FAERS Safety Report 7312291-8 (Version None)
Quarter: 2011Q1

REPORT INFORMATION
  Report Type: 
  Country: None (occurrence: None)
  Receive Date: 20110224
  Receipt Date: 20110216
  Transmission Date: 20110831
  Serious: Yes (Hospitalization)
  Sender: FDA-Public Use
  Company Number: B0700817A

PATIENT
  Sex: Female
  Weight: 39 kg

DRUGS (20)
  1. FUNGUARD [Concomitant]
     Dosage: 100MG PER DAY
     Route: 042
     Dates: start: 20031028, end: 20031201
  2. VALTREX [Concomitant]
     Dosage: 500MG PER DAY
     Route: 048
     Dates: start: 20031124
  3. ZOVIRAX [Concomitant]
     Dosage: 250MG PER DAY
     Route: 042
     Dates: start: 20031025, end: 20031125
  4. MODACIN [Concomitant]
     Dosage: 4G PER DAY
     Route: 042
     Dates: start: 20031114, end: 20031119
  5. DIFLUCAN [Concomitant]
     Dosage: 200MG PER DAY
     Route: 048
     Dates: start: 20031126
  6. BAKTAR [Concomitant]
     Dosage: 1IUAX PER DAY
     Route: 048
     Dates: start: 20031017, end: 20031030
  7. ITRIZOLE [Concomitant]
     Dosage: 200MG PER DAY
     Route: 048
     Dates: start: 20031017, end: 20031030
  8. AMIKACIN SULFATE [Concomitant]
     Dosage: 400MG PER DAY
     Dates: start: 20031031, end: 20031107
  9. ALDACTONE [Concomitant]
     Dosage: 25MG PER DAY
     Route: 048
     Dates: start: 20031017, end: 20031030
  10. VALTREX [Concomitant]
     Dosage: 500MG PER DAY
     Route: 048
     Dates: start: 20031017, end: 20031030
  11. HAPTOGLOBIN [Concomitant]
     Dosage: 4IU3 PER DAY
     Route: 042
     Dates: start: 20031024, end: 20031024
  12. DIFLUCAN [Concomitant]
     Dosage: 200MG PER DAY
     Route: 042
     Dates: start: 20031025, end: 20031027
  13. MEROPEN [Concomitant]
     Dosage: 2G PER DAY
     Route: 042
     Dates: start: 20031106, end: 20031113
  14. TARGOCID [Concomitant]
     Dosage: 400MG PER DAY
     Route: 042
     Dates: start: 20031106, end: 20031113
  15. ZANTAC [Concomitant]
     Dosage: 150MG PER DAY
     Route: 048
     Dates: start: 20031124
  16. BAKTAR [Concomitant]
     Dosage: 1IUAX PER DAY
     Route: 048
     Dates: start: 20031121
  17. ZANTAC [Concomitant]
     Dosage: 200MG PER DAY
     Dates: start: 20031025, end: 20031125
  18. ALKERAN [Suspect]
     Indication: STEM CELL TRANSPLANT
     Dosage: 100MGM2 PER DAY
     Route: 042
     Dates: start: 20031021, end: 20031022
  19. CRAVIT [Concomitant]
     Dosage: 300MG PER DAY
     Route: 048
     Dates: start: 20031017, end: 20031030
  20. MAXIPIME [Concomitant]
     Dosage: 4G PER DAY
     Route: 042
     Dates: start: 20031028, end: 20031107

REACTIONS (1)
  - PYREXIA [None]
